FAERS Safety Report 7001770-9 (Version None)
Quarter: 2010Q3

REPORT INFORMATION
  Report Type: 
  Country: None (occurrence: None)
  Receive Date: 20100920
  Receipt Date: 20071207
  Transmission Date: 20110219
  Serious: Yes (Other)
  Sender: FDA-Public Use
  Company Number: US-ASTRAZENECA-2006UW26579

PATIENT
  Age: 18199 Day
  Sex: Male
  Weight: 105.2 kg

DRUGS (12)
  1. SEROQUEL [Suspect]
     Indication: ANXIETY
     Dosage: 75-100 MG
     Route: 048
     Dates: start: 20040929
  2. SEROQUEL [Suspect]
     Indication: DEPRESSION
     Dosage: 75-100 MG
     Route: 048
     Dates: start: 20040929
  3. SEROQUEL [Suspect]
     Indication: BIPOLAR DISORDER
     Dosage: 75-100 MG
     Route: 048
     Dates: start: 20040929
  4. SEROQUEL [Suspect]
     Route: 048
     Dates: start: 20040901
  5. SEROQUEL [Suspect]
     Route: 048
     Dates: start: 20040901
  6. SEROQUEL [Suspect]
     Route: 048
     Dates: start: 20040901
  7. GLUCOTROL [Concomitant]
     Dosage: 5-10 MG
     Dates: start: 20050210
  8. GLUCOPHAGE [Concomitant]
     Dates: start: 20050210
  9. PREVACID [Concomitant]
     Dates: start: 20030910
  10. XANAX [Concomitant]
     Dates: start: 20000114
  11. FOLIC ACID [Concomitant]
     Dates: start: 20000114
  12. PLENDIL [Concomitant]
     Dosage: 7.5-10 MG
     Dates: start: 20030910

REACTIONS (4)
  - DIABETES MELLITUS [None]
  - PANCREATITIS [None]
  - PANCREATITIS CHRONIC [None]
  - TYPE 2 DIABETES MELLITUS [None]
